FAERS Safety Report 6228879-1 (Version None)
Quarter: 2009Q2

REPORT INFORMATION
  Report Type: 
  Country: None (occurrence: None)
  Receive Date: 20090615
  Receipt Date: 20090603
  Transmission Date: 20091009
  Serious: Yes (Death, Other)
  Sender: FDA-Public Use
  Company Number: TN-BRISTOL-MYERS SQUIBB COMPANY-14659825

PATIENT
  Age: 30 Year

DRUGS (2)
  1. CYCLOPHOSPHAMIDE [Suspect]
     Indication: APLASTIC ANAEMIA
     Dosage: ON DAYS -6, -5, -4, -3
  2. ANTITHYMOCYTE GLOBULIN [Suspect]
     Indication: APLASTIC ANAEMIA
     Dosage: ON DAYS -6, -5, AND -4

REACTIONS (5)
  - ACUTE GRAFT VERSUS HOST DISEASE [None]
  - CYSTITIS HAEMORRHAGIC [None]
  - HISTIOCYTOSIS HAEMATOPHAGIC [None]
  - MULTI-ORGAN FAILURE [None]
  - TRANSPLANT FAILURE [None]
